FAERS Safety Report 16081817 (Version 1)
Quarter: 2019Q1

REPORT INFORMATION
  Report Type: Spontaneous
  Country: US (occurrence: US)
  Receive Date: 20190316
  Receipt Date: 20190316
  Transmission Date: 20190418
  Serious: No
  Sender: FDA-Public Use
  Company Number: US-ORION CORPORATION ORION PHARMA-ENT 2018-0137

PATIENT
  Sex: Male

DRUGS (1)
  1. ENTACAPONE (TRADE NAME UNKNOWN) [Suspect]
     Active Substance: ENTACAPONE
     Indication: PRODUCT USED FOR UNKNOWN INDICATION
     Dosage: 3X, STRENGTH: 200 MG
     Route: 065

REACTIONS (2)
  - Dizziness [Unknown]
  - Drug ineffective [Unknown]
